FAERS Safety Report 23463500 (Version 1)
Quarter: 2024Q1

REPORT INFORMATION
  Report Type: Spontaneous
  Country: CN (occurrence: CN)
  Receive Date: 20240131
  Receipt Date: 20240131
  Transmission Date: 20240410
  Serious: Yes (Other)
  Sender: FDA-Public Use
  Company Number: CN-BEH-2024168006

PATIENT
  Age: 60 Year
  Sex: Female
  Weight: 69 kg

DRUGS (1)
  1. ALBURX [Suspect]
     Active Substance: ALBUMIN HUMAN
     Indication: Hypoproteinaemia
     Dosage: 20 GRAM, OD
     Route: 041
     Dates: start: 20240121, end: 20240121

REACTIONS (7)
  - Palpitations [Recovered/Resolved]
  - Tachypnoea [Recovered/Resolved]
  - Dyspnoea [Recovered/Resolved]
  - Muscle tightness [Recovered/Resolved]
  - Pruritus [Recovered/Resolved]
  - Blood pressure increased [Recovered/Resolved]
  - Urticaria [Recovered/Resolved]

NARRATIVE: CASE EVENT DATE: 20240121
